FAERS Safety Report 6100282-4 (Version None)
Quarter: 2009Q1

REPORT INFORMATION
  Report Type: 
  Country: None (occurrence: None)
  Receive Date: 20090303
  Receipt Date: 20090224
  Transmission Date: 20090719
  Serious: Yes (Other)
  Sender: FDA-Public Use
  Company Number: US-GENENTECH-278130

PATIENT
  Age: 79 Year
  Sex: Male

DRUGS (2)
  1. AVASTIN [Suspect]
     Indication: MALIGNANT MELANOMA
  2. ABRAXANE [Suspect]
     Indication: MALIGNANT MELANOMA

REACTIONS (1)
  - METASTASES TO MENINGES [None]
